FAERS Safety Report 6265196-8 (Version None)
Quarter: 2009Q3

REPORT INFORMATION
  Report Type: 
  Country: None (occurrence: None)
  Receive Date: 20090709
  Receipt Date: 20090709
  Transmission Date: 20100115
  Serious: Yes (Other)
  Sender: FDA-Public Use
  Company Number: None

PATIENT
  Sex: Male
  Weight: 81.6475 kg

DRUGS (3)
  1. SULAR [Suspect]
     Indication: HYPERTENSION
     Dosage: 1 PER DAY
     Dates: start: 20090519, end: 20090528
  2. BENICAR [Concomitant]
  3. CLONIDINE [Concomitant]

REACTIONS (1)
  - MIGRAINE [None]
